FAERS Safety Report 9412341 (Version 2)
Quarter: 2013Q3

REPORT INFORMATION
  Report Type: Spontaneous
  Country: US (occurrence: US)
  Receive Date: 20130722
  Receipt Date: 20130731
  Transmission Date: 20140515
  Serious: Yes (Death)
  Sender: FDA-Public Use
  Company Number: US-PFIZER INC-2013212844

PATIENT
  Age: 69 Year
  Sex: Female

DRUGS (1)
  1. RAPAMUNE [Suspect]
     Indication: LIVER TRANSPLANT
     Dosage: 1 MG, 3X/DAY (3 TABLETS DAILY)
     Dates: start: 20110512

REACTIONS (2)
  - Pneumonia [Fatal]
  - Off label use [Unknown]
